FAERS Safety Report 22120302 (Version 1)
Quarter: 2023Q1

REPORT INFORMATION
  Report Type: Spontaneous
  Country: US (occurrence: US)
  Receive Date: 20230321
  Receipt Date: 20230321
  Transmission Date: 20230418
  Serious: No
  Sender: FDA-Public Use
  Company Number: US-JNJFOC-20230335832

PATIENT
  Sex: Female

DRUGS (1)
  1. IMODIUM MULTI-SYMPTOM RELIEF [Suspect]
     Active Substance: DIMETHICONE\LOPERAMIDE HYDROCHLORIDE
     Indication: Diarrhoea
     Dosage: 6 TO 8 A DAY
     Route: 048

REACTIONS (3)
  - Overdose [Unknown]
  - Incorrect product administration duration [Unknown]
  - Product packaging issue [Unknown]
